FAERS Safety Report 22320768 (Version 1)
Quarter: 2023Q2

REPORT INFORMATION
  Report Type: Spontaneous
  Country: US (occurrence: US)
  Receive Date: 20230515
  Receipt Date: 20230515
  Transmission Date: 20230722
  Serious: Yes (Hospitalization, Other)
  Sender: FDA-Public Use
  Company Number: US-MYLANLABS-2022M1113457

PATIENT

DRUGS (5)
  1. HYDROCORTISONE BUTYRATE [Suspect]
     Active Substance: HYDROCORTISONE BUTYRATE
     Indication: Steroid therapy
     Dosage: UNK (STRESS DOSE STEROIDS)
     Route: 065
  2. VECURONIUM [Suspect]
     Active Substance: VECURONIUM BROMIDE
     Indication: Product used for unknown indication
     Dosage: 0.3 MILLIGRAM/KILOGRAM 1 HOUR
     Route: 065
  3. VECURONIUM [Suspect]
     Active Substance: VECURONIUM BROMIDE
     Dosage: 0.06 MILLIGRAM/KILOGRAM 1 HOUR
     Route: 065
  4. FENTANYL [Concomitant]
     Active Substance: FENTANYL
     Indication: Analgesic therapy
     Dosage: 2 MICROGRAM/KILOGRAM, 1 HOUR (TITRATED)
     Route: 065
  5. FENTANYL [Concomitant]
     Active Substance: FENTANYL
     Indication: Sedation
     Dosage: UNK, CONTINUOUS
     Route: 065

REACTIONS (1)
  - Neuromuscular block prolonged [Recovered/Resolved]
